FAERS Safety Report 16423235 (Version 1)
Quarter: 2019Q2

REPORT INFORMATION
  Report Type: Spontaneous
  Country: PL (occurrence: PL)
  Receive Date: 20190612
  Receipt Date: 20190612
  Transmission Date: 20190711
  Serious: Yes (Death)
  Sender: FDA-Public Use
  Company Number: PL-ALLERGAN-1924625US

PATIENT
  Sex: Female

DRUGS (12)
  1. BUPRENORPHINE. [Suspect]
     Active Substance: BUPRENORPHINE
     Indication: NEURALGIA
     Dosage: 35 ?G/H
     Route: 062
     Dates: end: 201308
  2. BUPRENORPHINE. [Suspect]
     Active Substance: BUPRENORPHINE
     Dosage: 105 ?G/H
     Route: 062
     Dates: start: 201401, end: 201402
  3. PREGABALIN. [Suspect]
     Active Substance: PREGABALIN
     Indication: NEURALGIA
     Dosage: 75 MG, BID
     Route: 065
     Dates: start: 201308
  4. MORPHINE SULFATE UNK [Suspect]
     Active Substance: MORPHINE SULFATE
     Dosage: 30 MG, BID
     Route: 065
     Dates: start: 201402
  5. BUPRENORPHINE. [Suspect]
     Active Substance: BUPRENORPHINE
     Dosage: 52.5 ?G/H
     Route: 062
     Dates: start: 201308, end: 201309
  6. MORPHINE SULFATE UNK [Suspect]
     Active Substance: MORPHINE SULFATE
     Dosage: 10 MG, Q6HR
     Route: 058
     Dates: start: 201402
  7. MORPHINE SULFATE UNK [Suspect]
     Active Substance: MORPHINE SULFATE
     Indication: PAIN MANAGEMENT
     Dosage: 20 MG, QD
     Route: 065
     Dates: start: 201308
  8. BUPRENORPHINE. [Suspect]
     Active Substance: BUPRENORPHINE
     Dosage: 70 ?G/H
     Route: 062
     Dates: start: 201309, end: 201401
  9. BUPRENORPHINE. [Suspect]
     Active Substance: BUPRENORPHINE
     Dosage: 140 ?G/H
     Route: 062
     Dates: start: 201402
  10. MORPHINE SULFATE UNK [Suspect]
     Active Substance: MORPHINE SULFATE
     Dosage: 20 MG, BID
     Route: 065
     Dates: end: 201312
  11. MORPHINE SULFATE UNK [Suspect]
     Active Substance: MORPHINE SULFATE
     Dosage: 100 MG, CONTINUOUS INFUSION
     Route: 058
     Dates: start: 201405
  12. MORPHINE SULFATE UNK [Suspect]
     Active Substance: MORPHINE SULFATE
     Dosage: 20 MG, TID
     Route: 065
     Dates: start: 201312

REACTIONS (6)
  - Femur fracture [Unknown]
  - Fall [Unknown]
  - Gait inability [Unknown]
  - Death [Fatal]
  - General physical health deterioration [Unknown]
  - Pain [Recovered/Resolved]

NARRATIVE: CASE EVENT DATE: 201403
